FAERS Safety Report 4672512-7 (Version None)
Quarter: 2005Q2

REPORT INFORMATION
  Report Type: 
  Country: None (occurrence: None)
  Receive Date: 20050524
  Receipt Date: 20050505
  Transmission Date: 20051028
  Serious: Yes (Hospitalization)
  Sender: FDA-Public Use
  Company Number: US-BRISTOL-MYERS SQUIBB COMPANY-12959219

PATIENT
  Age: 57 Year
  Sex: Male

DRUGS (7)
  1. CETUXIMAB [Suspect]
     Indication: NON-SMALL CELL LUNG CANCER
     Route: 042
     Dates: start: 20050503, end: 20050503
  2. CARBOPLATIN [Suspect]
     Indication: NON-SMALL CELL LUNG CANCER
     Route: 042
     Dates: start: 20050412, end: 20050412
  3. PACLITAXEL [Suspect]
     Indication: NON-SMALL CELL LUNG CANCER
     Route: 042
     Dates: start: 20050426, end: 20050426
  4. COUMADIN [Concomitant]
  5. NORVASC [Concomitant]
     Dates: start: 20000101
  6. PERCOCET [Concomitant]
     Dates: start: 20050221, end: 20050510
  7. PROTONIX [Concomitant]
     Dates: start: 20050221

REACTIONS (1)
  - DEEP VEIN THROMBOSIS [None]
